FAERS Safety Report 5778928-X (Version None)
Quarter: 2008Q2

REPORT INFORMATION
  Report Type: 
  Country: None (occurrence: None)
  Receive Date: 20080619
  Receipt Date: 20080612
  Transmission Date: 20081010
  Serious: Yes (Hospitalization)
  Sender: FDA-Public Use
  Company Number: AU-WYE-G01674108

PATIENT
  Sex: Female

DRUGS (5)
  1. EFFEXOR XR [Suspect]
     Dosage: 75 MG
     Route: 048
  2. EFFEXOR XR [Suspect]
     Dosage: 150 MG
     Route: 048
  3. EFFEXOR XR [Suspect]
     Dosage: 300 MG
     Route: 048
     Dates: end: 20080527
  4. EFFEXOR XR [Suspect]
     Dosage: 150 M G
     Route: 048
     Dates: start: 20080528, end: 20080531
  5. EFFEXOR XR [Suspect]
     Dosage: 75 MG
     Route: 048
     Dates: start: 20080601, end: 20080604

REACTIONS (21)
  - ASTHENIA [None]
  - DEPRESSION [None]
  - DIZZINESS [None]
  - DRUG INEFFECTIVE [None]
  - DRUG WITHDRAWAL SYNDROME [None]
  - DYSPHAGIA [None]
  - DYSPNOEA [None]
  - DYSSTASIA [None]
  - FACIAL PALSY [None]
  - FATIGUE [None]
  - FEELING HOT [None]
  - GAIT DISTURBANCE [None]
  - HEADACHE [None]
  - HEMIPARESIS [None]
  - HEMIPLEGIA [None]
  - HYPOAESTHESIA [None]
  - MUSCLE CONTRACTIONS INVOLUNTARY [None]
  - PALPITATIONS [None]
  - PARAESTHESIA [None]
  - PERIPHERAL COLDNESS [None]
  - SPEECH DISORDER [None]
